FAERS Safety Report 6294900-8 (Version None)
Quarter: 2009Q3

REPORT INFORMATION
  Report Type: 
  Country: None (occurrence: None)
  Receive Date: 20090731
  Receipt Date: 20090731
  Transmission Date: 20100115
  Serious: Yes (Other)
  Sender: FDA-Public Use
  Company Number: None

PATIENT
  Age: 28 Year
  Sex: Female
  Weight: 94.3482 kg

DRUGS (1)
  1. NUVARING [Suspect]
     Indication: HYPERSENSITIVITY
     Dosage: 1ST TIME USE
     Dates: start: 20090726, end: 20090728

REACTIONS (1)
  - URTICARIA [None]
